FAERS Safety Report 5929291-2 (Version None)
Quarter: 2008Q4

REPORT INFORMATION
  Report Type: 
  Country: None (occurrence: None)
  Receive Date: 20081020
  Receipt Date: 20081010
  Transmission Date: 20090506
  Serious: Yes (Hospitalization)
  Sender: FDA-Public Use
  Company Number: GXKR2008CZ09732

PATIENT
  Age: 40 Year
  Sex: Male

DRUGS (2)
  1. FLUCONAZOLE [Suspect]
     Indication: SEPSIS
     Dosage: 150 MG, ORAL, 400 MG, INTRAVENOUS
     Route: 048
  2. VORICONAZOLE (VORICONAZOLE) [Suspect]
     Indication: SEPSIS
     Dosage: 200 MG, ORAL
     Route: 048

REACTIONS (9)
  - ABSCESS [None]
  - AORTIC VALVE REPLACEMENT [None]
  - BACTERIA BLOOD IDENTIFIED [None]
  - BACTERIA URINE IDENTIFIED [None]
  - BODY TEMPERATURE DECREASED [None]
  - FUNGAL INFECTION [None]
  - INFLAMMATION [None]
  - ISCHAEMIC STROKE [None]
  - PATHOGEN RESISTANCE [None]
